FAERS Safety Report 16077159 (Version 1)
Quarter: 2019Q1

REPORT INFORMATION
  Report Type: Spontaneous
  Country: AU (occurrence: AU)
  Receive Date: 20190315
  Receipt Date: 20190315
  Transmission Date: 20190418
  Serious: Yes (Other)
  Sender: FDA-Public Use
  Company Number: AU-TEVA-2019-AU-1024357

PATIENT
  Age: 56 Year
  Sex: Female

DRUGS (6)
  1. MINIRIN [Concomitant]
     Active Substance: DESMOPRESSIN ACETATE
  2. OSTELIN VITAMIN D (COLECALCIFEROL) [Concomitant]
  3. HYSONE TABLETS (HYDROCORTISONE) [Concomitant]
  4. VALSARTAN. [Concomitant]
     Active Substance: VALSARTAN
  5. ACTONEL EC COMBI D (RISEDRONATE SODIUM, EDETATE DISODIUM, CALCIUM CARBONATE, VITAMIN D3) TABLET, 35MG [Suspect]
     Active Substance: CALCIUM CARBONATE\CHOLECALCIFEROL\RISEDRONATE SODIUM
     Indication: PRODUCT USED FOR UNKNOWN INDICATION
     Dosage: ONCE-A-WEEK
  6. SYNACTHEN (TETRACOSACTIDE (TETRACOSACTRIN)) [Concomitant]

REACTIONS (1)
  - Iridocyclitis [Unknown]
